FAERS Safety Report 10075654 (Version 1)
Quarter: 2014Q2

REPORT INFORMATION
  Report Type: Spontaneous
  Country: US (occurrence: None)
  Receive Date: 20140411
  Receipt Date: 20140411
  Transmission Date: 20141212
  Serious: Yes (Other)
  Sender: FDA-Public Use
  Company Number: None

PATIENT
  Age: 46 Year
  Sex: Male
  Weight: 102.97 kg

DRUGS (1)
  1. QSYMIA [Suspect]
     Indication: OBESITY
     Route: 048
     Dates: start: 20140319, end: 20140401

REACTIONS (2)
  - Vision blurred [None]
  - Diarrhoea [None]
